FAERS Safety Report 4359848-4 (Version None)
Quarter: 2004Q2

REPORT INFORMATION
  Report Type: 
  Country: None (occurrence: None)
  Receive Date: 20040517
  Receipt Date: 20040428
  Transmission Date: 20050107
  Serious: Yes (Death)
  Sender: FDA-Public Use
  Company Number: S04-UKI-01943-01

PATIENT
  Age: 59 Year

DRUGS (4)
  1. CIPRALEX (ESCITALOPRAM) [Suspect]
     Indication: DEPRESSION
     Dosage: 10 MG QD PO
     Route: 048
     Dates: start: 20021107, end: 20040415
  2. ATENOLOL [Concomitant]
  3. DYAZIDE [Concomitant]
  4. AMLODIPINE [Concomitant]

REACTIONS (1)
  - COMPLETED SUICIDE [None]
